FAERS Safety Report 5814110-5 (Version None)
Quarter: 2008Q3

REPORT INFORMATION
  Report Type: 
  Country: None (occurrence: None)
  Receive Date: 20080717
  Receipt Date: 20080707
  Transmission Date: 20090109
  Serious: Yes (Other)
  Sender: FDA-Public Use
  Company Number: GB-PFIZER INC-2008056590

PATIENT
  Sex: Female

DRUGS (1)
  1. TRANEXAMIC ACID (IV) [Suspect]

REACTIONS (1)
  - CONVULSION [None]
